FAERS Safety Report 4988836-X (Version None)
Quarter: 2006Q2

REPORT INFORMATION
  Report Type: 
  Country: None (occurrence: None)
  Receive Date: 20060502
  Receipt Date: 20060104
  Transmission Date: 20061013
  Serious: Yes (Hospitalization)
  Sender: FDA-Public Use
  Company Number: US-MERCK-0601USA00338

PATIENT
  Age: 51 Year
  Sex: Male
  Weight: 82 kg

DRUGS (3)
  1. VIOXX [Suspect]
     Indication: ARTHRITIS
     Route: 048
     Dates: start: 20010301, end: 20041001
  2. IBUPROFEN [Concomitant]
     Route: 065
  3. ENTEX (NEW FORMULA) [Concomitant]
     Route: 065

REACTIONS (10)
  - ARTHRALGIA [None]
  - ARTHROPATHY [None]
  - CEREBROVASCULAR ACCIDENT [None]
  - DYSPEPSIA [None]
  - GASTROOESOPHAGEAL REFLUX DISEASE [None]
  - KNEE ARTHROPLASTY [None]
  - OESOPHAGEAL DISORDER [None]
  - PARALYSIS [None]
  - POLYTRAUMATISM [None]
  - TRANSIENT ISCHAEMIC ATTACK [None]
